FAERS Safety Report 21912597 (Version 1)
Quarter: 2023Q1

REPORT INFORMATION
  Report Type: Spontaneous
  Country: US (occurrence: US)
  Receive Date: 20230125
  Receipt Date: 20230125
  Transmission Date: 20230418
  Serious: No
  Sender: FDA-Public Use
  Company Number: US-ALLERGAN-2220549US

PATIENT
  Sex: Female

DRUGS (9)
  1. BOTOX [Suspect]
     Active Substance: ONABOTULINUMTOXINA
     Indication: Headache
     Dosage: UNK, SINGLE
     Dates: start: 202102, end: 202102
  2. BOTOX [Suspect]
     Active Substance: ONABOTULINUMTOXINA
     Dosage: UNK UNK, SINGLE
     Route: 058
     Dates: start: 201504, end: 201504
  3. SUMATRIPTAN [Concomitant]
     Active Substance: SUMATRIPTAN
     Indication: Migraine
     Dosage: 6 MG, BI-WEEKLY
     Route: 058
     Dates: start: 202101
  4. SUMATRIPTAN [Concomitant]
     Active Substance: SUMATRIPTAN
     Dosage: 1 TABLET
     Route: 048
     Dates: start: 2014
  5. EFFEXOR [Concomitant]
     Active Substance: VENLAFAXINE HYDROCHLORIDE
     Indication: Migraine
     Route: 048
     Dates: start: 2014
  6. TIZANIDINE HYDROCHLORIDE [Concomitant]
     Active Substance: TIZANIDINE HYDROCHLORIDE
     Indication: Muscle spasms
     Dosage: 4 MG, QD
     Route: 048
     Dates: start: 2018
  7. CLONAZEPAM [Concomitant]
     Active Substance: CLONAZEPAM
     Indication: Migraine
     Dosage: 1.5 MG, QD
     Route: 048
     Dates: start: 2014
  8. Nuertec [Concomitant]
     Indication: Migraine
     Dates: start: 2020, end: 202111
  9. CAMBIA [Concomitant]
     Active Substance: DICLOFENAC POTASSIUM
     Indication: Migraine
     Route: 048
     Dates: start: 2020, end: 202111

REACTIONS (2)
  - Incorrect route of product administration [Unknown]
  - Therapeutic product effect incomplete [Unknown]
